FAERS Safety Report 6723103-5 (Version None)
Quarter: 2010Q2

REPORT INFORMATION
  Report Type: 
  Country: None (occurrence: None)
  Receive Date: 20100513
  Receipt Date: 20100426
  Transmission Date: 20101027
  Serious: Yes (Hospitalization, Other)
  Sender: FDA-Public Use
  Company Number: US-BAYER-200938258NA

PATIENT
  Age: 47 Year
  Sex: Female
  Weight: 82 kg

DRUGS (6)
  1. YAZ [Suspect]
     Indication: ORAL CONTRACEPTION
     Route: 048
     Dates: start: 20080601, end: 20081001
  2. CITALOPRAM [Concomitant]
     Dates: start: 20020101
  3. ANSAID [Concomitant]
  4. COUMADIN [Concomitant]
  5. OMEPRAZOLE [Concomitant]
  6. LORTAB [Concomitant]
     Dosage: 5 MG/500 MG

REACTIONS (7)
  - DEEP VEIN THROMBOSIS [None]
  - DYSPNOEA EXERTIONAL [None]
  - MUSCLE SPASMS [None]
  - PAIN [None]
  - PAIN IN EXTREMITY [None]
  - PULMONARY EMBOLISM [None]
  - SWELLING [None]
